FAERS Safety Report 8984537 (Version 1)
Quarter: 2012Q4

REPORT INFORMATION
  Report Type: 
  Country: FR (occurrence: FR)
  Receive Date: 20121225
  Receipt Date: 20121225
  Transmission Date: 20130627
  Serious: Yes (Hospitalization)
  Sender: FDA-Public Use
  Company Number: FR-SANOFI-AVENTIS-2012SA093388

PATIENT
  Age: 59 Year
  Sex: Female

DRUGS (8)
  1. DEPAKINE CHRONO [Suspect]
     Indication: DRUG USE FOR UNKNOWN INDICATION
     Route: 048
     Dates: start: 20121002
  2. URBANYL [Suspect]
     Indication: DRUG USE FOR UNKNOWN INDICATION
     Route: 065
  3. LOVENOX [Suspect]
     Indication: DRUG USE FOR UNKNOWN INDICATION
     Route: 058
     Dates: start: 20121005
  4. ASPEGIC [Suspect]
     Indication: DRUG USE FOR UNKNOWN INDICATION
     Route: 065
  5. ZOVIRAX [Suspect]
     Indication: DRUG USE FOR UNKNOWN INDICATION
     Route: 042
     Dates: start: 20120929, end: 20121005
  6. PRODILANTIN [Concomitant]
     Route: 042
     Dates: start: 20120929
  7. CLAFORAN [Concomitant]
     Dates: start: 20120929
  8. FLAGYL [Concomitant]
     Route: 042
     Dates: start: 20120929

REACTIONS (3)
  - Renal failure acute [Not Recovered/Not Resolved]
  - Blood creatinine increased [Recovered/Resolved]
  - Blood urea increased [Not Recovered/Not Resolved]
